FAERS Safety Report 9255586 (Version 1)
Quarter: 2013Q1

REPORT INFORMATION
  Report Type: Spontaneous
  Country: US (occurrence: None)
  Receive Date: 20121203
  Receipt Date: 20121203
  Transmission Date: 20140127
  Serious: Yes (Other)
  Sender: FDA-Public Use
  Company Number: 2011SP049458

PATIENT
  Age: 60 Year
  Sex: Female

DRUGS (1)
  1. NASONEX [Suspect]
     Indication: HYPERSENSITIVITY
     Route: 045
     Dates: start: 201105

REACTIONS (3)
  - Anaphylactic reaction [None]
  - Respiratory distress [None]
  - Dysphonia [None]
